FAERS Safety Report 5789891-X (Version None)
Quarter: 2008Q2

REPORT INFORMATION
  Report Type: 
  Country: None (occurrence: None)
  Receive Date: 20080626
  Receipt Date: 20080623
  Transmission Date: 20081010
  Serious: Yes (Hospitalization)
  Sender: FDA-Public Use
  Company Number: FR-BRISTOL-MYERS SQUIBB COMPANY-14238059

PATIENT
  Age: 71 Year
  Sex: Female

DRUGS (11)
  1. COAPROVEL TABS 300MG/12.5MG [Suspect]
  2. GLUCOPHAGE [Suspect]
  3. FUROSEMIDE [Suspect]
  4. LYRICA [Suspect]
  5. TEMERIT [Suspect]
  6. LERCAN [Suspect]
  7. AMOXICILLIN TRIHYDRATE [Suspect]
  8. LEVEMIR [Suspect]
  9. FLECAINIDE ACETATE [Suspect]
  10. FLUOXETINE [Suspect]
  11. PREVISCAN [Concomitant]

REACTIONS (3)
  - BRADYCARDIA [None]
  - HYPERKALAEMIA [None]
  - RENAL FAILURE ACUTE [None]
